FAERS Safety Report 6145592-X (Version None)
Quarter: 2009Q2

REPORT INFORMATION
  Report Type: 
  Country: None (occurrence: None)
  Receive Date: 20090407
  Receipt Date: 20090331
  Transmission Date: 20091009
  Serious: Yes (Other)
  Sender: FDA-Public Use
  Company Number: US-PFIZER INC-2004221446US

PATIENT
  Sex: Female
  Weight: 68 kg

DRUGS (8)
  1. PROVERA [Suspect]
     Indication: HORMONE REPLACEMENT THERAPY
     Dosage: 2.5 MG, UNK
     Route: 048
     Dates: start: 19820601, end: 19960101
  2. PROVERA [Suspect]
     Dosage: 5 MG, UNK
     Dates: start: 19820601, end: 19960101
  3. PROVERA [Suspect]
     Dosage: 10 MG, UNK
     Dates: start: 19820601, end: 19960101
  4. MEDROXYPROGESTERONE AND MEDROXYPROGESTERONE ACETATE [Suspect]
     Indication: HORMONE REPLACEMENT THERAPY
     Dosage: 5 MG, UNK
     Route: 048
     Dates: start: 19960701, end: 19960801
  5. PREMARIN [Suspect]
     Indication: HORMONE REPLACEMENT THERAPY
     Dosage: 0.625 MG, UNK
     Dates: start: 19830401, end: 19960801
  6. PREMARIN [Suspect]
     Dosage: 2.5 MG, UNK
     Dates: start: 19830401, end: 19960801
  7. PREMPRO [Suspect]
     Indication: HORMONE REPLACEMENT THERAPY
     Dosage: 0.625/2.5
     Dates: start: 19830101, end: 19990101
  8. PREMPHASE 14/14 [Suspect]
     Indication: HORMONE REPLACEMENT THERAPY
     Dosage: 0.625/2.5
     Dates: start: 19960801, end: 19990401

REACTIONS (1)
  - BREAST CANCER FEMALE [None]
